FAERS Safety Report 13705035 (Version 1)
Quarter: 2017Q2

REPORT INFORMATION
  Report Type: Spontaneous
  Country: US (occurrence: US)
  Receive Date: 20170629
  Receipt Date: 20170629
  Transmission Date: 20170830
  Serious: Yes (Disabling, Other)
  Sender: FDA-Public Use
  Company Number: None

PATIENT
  Age: 40 Year
  Sex: Female
  Weight: 94.5 kg

DRUGS (5)
  1. TRAZODONE [Concomitant]
     Active Substance: TRAZODONE HYDROCHLORIDE
  2. IBUPROFEN. [Concomitant]
     Active Substance: IBUPROFEN
  3. BUPROPION. [Concomitant]
     Active Substance: BUPROPION
  4. HALDOL [Suspect]
     Active Substance: HALOPERIDOL
     Indication: SCHIZOPHRENIA
     Dosage: ?          OTHER STRENGTH:MG;QUANTITY:1 INJECTION(S);OTHER FREQUENCY:1 TIME A MONTH;?
     Route: 030
     Dates: start: 19901003, end: 20170127
  5. BENZTROPINE [Concomitant]
     Active Substance: BENZTROPINE

REACTIONS (8)
  - Lactation puerperal increased [None]
  - Brain neoplasm [None]
  - Blood prolactin increased [None]
  - Hypertension [None]
  - Headache [None]
  - Hormone level abnormal [None]
  - Visual impairment [None]
  - Chest pain [None]

NARRATIVE: CASE EVENT DATE: 20161103
